FAERS Safety Report 16952827 (Version 1)
Quarter: 2019Q4

REPORT INFORMATION
  Report Type: Spontaneous
  Country: US (occurrence: US)
  Receive Date: 20190904
  Receipt Date: 20190904
  Transmission Date: 20200122
  Serious: No
  Sender: FDA-Public Use
  Company Number: None

PATIENT
  Age: 45 Year
  Sex: Female
  Weight: 70.31 kg

DRUGS (2)
  1. RITUXAN [Suspect]
     Active Substance: RITUXIMAB
     Indication: SYSTEMIC LUPUS ERYTHEMATOSUS
     Route: 042
     Dates: start: 201906
  2. RITUXAN [Suspect]
     Active Substance: RITUXIMAB
     Indication: IRON DEFICIENCY ANAEMIA

REACTIONS (2)
  - Blood pressure measurement [None]
  - Cardiac disorder [None]
